FAERS Safety Report 10573613 (Version 1)
Quarter: 2014Q4

REPORT INFORMATION
  Report Type: Spontaneous
  Country: US (occurrence: None)
  Receive Date: 20141030
  Receipt Date: 20141030
  Transmission Date: 20150529
  Serious: Yes (Other)
  Sender: FDA-Public Use
  Company Number: PHEH2014US016729

PATIENT
  Age: 69 Year
  Sex: Female

DRUGS (18)
  1. GLIPIZIDE. [Concomitant]
     Active Substance: GLIPIZIDE
  2. CRESTOR [Concomitant]
     Active Substance: ROSUVASTATIN CALCIUM
  3. FLUOXETINE [Concomitant]
     Active Substance: FLUOXETINE\FLUOXETINE HYDROCHLORIDE
  4. VERAPAMIL [Concomitant]
     Active Substance: VERAPAMIL HYDROCHLORIDE
  5. LEVOTHYROXINE [Concomitant]
     Active Substance: LEVOTHYROXINE
  6. RECLAST [Suspect]
     Active Substance: ZOLEDRONIC ACID
     Dates: start: 20140812
  7. ARIMIDEX [Concomitant]
     Active Substance: ANASTROZOLE
  8. CARVEDILOL. [Concomitant]
     Active Substance: CARVEDILOL
  9. COUMADIN [Concomitant]
     Active Substance: WARFARIN SODIUM
  10. VITAMIN D3 [Concomitant]
     Active Substance: CHOLECALCIFEROL
  11. PROBIOTICS (NO INGREDIENTS / SUBSTANCES) [Concomitant]
  12. PERCOCET [Suspect]
     Active Substance: ACETAMINOPHEN\OXYCODONE HYDROCHLORIDE
     Indication: PAIN
     Dosage: UNK
  13. INSULIN [Concomitant]
     Active Substance: INSULIN NOS
  14. HYDROCHLOROTHIAZIDE. [Concomitant]
     Active Substance: HYDROCHLOROTHIAZIDE
  15. CALCIUM [Concomitant]
     Active Substance: CALCIUM
  16. METFORMIN [Concomitant]
     Active Substance: METFORMIN HYDROCHLORIDE
  17. MORPHINE [Suspect]
     Active Substance: MORPHINE
     Indication: PAIN
  18. NIACIN (NICOTINIC ACID) [Concomitant]

REACTIONS (15)
  - Fear of eating [None]
  - Joint swelling [None]
  - Crying [None]
  - Local swelling [None]
  - Aphagia [None]
  - Chills [None]
  - Pain in jaw [None]
  - Influenza like illness [None]
  - Hypokinesia [None]
  - Overweight [None]
  - Screaming [None]
  - Arthralgia [None]
  - Nausea [None]
  - Bone pain [None]
  - Speech disorder [None]
